FAERS Safety Report 20608436 (Version 1)
Quarter: 2022Q1

REPORT INFORMATION
  Report Type: Spontaneous
  Country: US (occurrence: US)
  Receive Date: 20220317
  Receipt Date: 20220317
  Transmission Date: 20220423
  Serious: No
  Sender: FDA-Public Use
  Company Number: US-BAXTER-2022BAX005598

PATIENT
  Sex: Male

DRUGS (1)
  1. DOBUTAMINE IN DEXTROSE [Suspect]
     Active Substance: DOBUTAMINE HYDROCHLORIDE
     Indication: Stress echocardiogram
     Route: 042

REACTIONS (3)
  - Device issue [Unknown]
  - Heart rate increased [Unknown]
  - Blood pressure increased [Unknown]
